FAERS Safety Report 5297843-1 (Version None)
Quarter: 2007Q2

REPORT INFORMATION
  Report Type: 
  Country: None (occurrence: None)
  Receive Date: 20070416
  Receipt Date: 20070406
  Transmission Date: 20071010
  Serious: Yes (Other)
  Sender: FDA-Public Use
  Company Number: US-ROCHE-472613

PATIENT
  Age: 47 Year
  Sex: Female

DRUGS (5)
  1. PEGASYS [Suspect]
     Dosage: STRENGTH: 180MCG/0.5CC
     Route: 058
     Dates: start: 20061031
  2. COPEGUS [Suspect]
     Route: 048
     Dates: start: 20061031
  3. METHADONE HCL [Concomitant]
     Indication: PAIN
  4. TRANXENE [Concomitant]
     Indication: ANXIETY
  5. GLYCOLAX [Concomitant]
     Indication: CONSTIPATION

REACTIONS (7)
  - CRYING [None]
  - DEHYDRATION [None]
  - DEPRESSION [None]
  - INFLUENZA LIKE ILLNESS [None]
  - INJECTION SITE ERYTHEMA [None]
  - IRRITABILITY [None]
  - WHITE BLOOD CELL COUNT DECREASED [None]
